FAERS Safety Report 8897189 (Version 1)
Quarter: 2012Q4

REPORT INFORMATION
  Report Type: Spontaneous
  Country: US (occurrence: None)
  Receive Date: 20121031
  Receipt Date: 20121031
  Transmission Date: 20130627
  Serious: Yes (Death, Other)
  Sender: FDA-Public Use
  Company Number: 2012MA012473

PATIENT
  Age: 44 Year
  Sex: Male
  Weight: 102.06 kg

DRUGS (6)
  1. LEVETIRACETAM [Suspect]
     Route: 048
  2. ALPRAZOLAM [Concomitant]
  3. CARISOPRADOL [Concomitant]
  4. CITALOPRAM [Concomitant]
  5. MEPROBAMATE [Concomitant]
  6. OXYCODONE [Concomitant]

REACTIONS (1)
  - Coronary artery disease [None]
